FAERS Safety Report 15988809 (Version 2)
Quarter: 2019Q1

REPORT INFORMATION
  Report Type: Spontaneous
  Country: FR (occurrence: FR)
  Receive Date: 20190221
  Receipt Date: 20190320
  Transmission Date: 20190418
  Serious: Yes (Life-Threatening)
  Sender: FDA-Public Use
  Company Number: FR-B.I. PHARMACEUTICALS,INC./RIDGEFIELD-2019-12-000603

PATIENT
  Age: 59 Year
  Sex: Male
  Weight: 69 kg

DRUGS (2)
  1. SPIRIVA [Suspect]
     Active Substance: TIOTROPIUM BROMIDE MONOHYDRATE
     Indication: CHRONIC OBSTRUCTIVE PULMONARY DISEASE
     Route: 055
     Dates: start: 201406, end: 201811
  2. ASPRO [Suspect]
     Active Substance: ASPIRIN\SODIUM BICARBONATE
     Indication: HEADACHE
     Route: 048
     Dates: start: 201802, end: 201802

REACTIONS (1)
  - Subarachnoid haemorrhage [Recovered/Resolved]

NARRATIVE: CASE EVENT DATE: 20180207
